FAERS Safety Report 26133463 (Version 1)
Quarter: 2025Q4

REPORT INFORMATION
  Report Type: Report from Study
  Country: US (occurrence: US)
  Receive Date: 20251209
  Receipt Date: 20251209
  Transmission Date: 20260118
  Serious: No
  Sender: DECIPHERA PHARMACEUTICALS
  Company Number: US-DECIPHERA PHARMACEUTICALS LLC-2025US001444

PATIENT
  Age: 75 Year
  Sex: Female
  Weight: 82.086 kg

DRUGS (3)
  1. QINLOCK [Suspect]
     Active Substance: RIPRETINIB
     Indication: Malignant connective tissue neoplasm
     Dosage: 50 MILLIGRAM, QD
     Dates: start: 20210721
  2. QINLOCK [Suspect]
     Active Substance: RIPRETINIB
     Indication: Soft tissue sarcoma
  3. QINLOCK [Suspect]
     Active Substance: RIPRETINIB
     Indication: Metastases to liver

REACTIONS (2)
  - Limb injury [Unknown]
  - Impaired healing [Unknown]
